FAERS Safety Report 9276448 (Version 1)
Quarter: 2012Q4

REPORT INFORMATION
  Report Type: Spontaneous
  Country: IN (occurrence: None)
  Receive Date: 20121109
  Receipt Date: 20121109
  Transmission Date: 20130627
  Serious: Yes (Death)
  Sender: FDA-Public Use
  Company Number: 2012S1000314

PATIENT
  Age: 55 Year
  Sex: Male

DRUGS (1)
  1. CUBICIN [Suspect]
     Indication: SEPSIS
     Dosage: 6 MG/KG; UNK ; IV
     Route: 042
     Dates: start: 20120203

REACTIONS (2)
  - Multi-organ failure [None]
  - Off label use [None]
